FAERS Safety Report 23306324 (Version 1)
Quarter: 2023Q4

REPORT INFORMATION
  Report Type: Spontaneous
  Country: GB (occurrence: GB)
  Receive Date: 20231218
  Receipt Date: 20231218
  Transmission Date: 20240110
  Serious: Yes (Other)
  Sender: FDA-Public Use
  Company Number: GB-ORGANON-O2312GBR001443

PATIENT
  Age: 48 Year
  Sex: Female

DRUGS (1)
  1. NEXPLANON [Suspect]
     Active Substance: ETONOGESTREL
     Dosage: 1 IMPLANT
     Route: 059
     Dates: start: 2017

REACTIONS (4)
  - Crohn^s disease [Not Recovered/Not Resolved]
  - Mood swings [Unknown]
  - Hot flush [Unknown]
  - Incorrect product administration duration [Unknown]
